FAERS Safety Report 7568941-4 (Version None)
Quarter: 2011Q2

REPORT INFORMATION
  Report Type: 
  Country: None (occurrence: None)
  Receive Date: 20110623
  Receipt Date: 20110614
  Transmission Date: 20111010
  Serious: Yes (Hospitalization)
  Sender: FDA-Public Use
  Company Number: BR-ASTRAZENECA-2011SE36462

PATIENT
  Age: 15 Year
  Sex: Male
  Weight: 46 kg

DRUGS (3)
  1. BUDESONIDE [Suspect]
     Route: 045
     Dates: start: 20060101
  2. SYMBICORT [Suspect]
     Dosage: 160/4.5 MCG BID
     Route: 055
  3. SYMBICORT [Suspect]
     Indication: ASTHMA
     Dosage: 80/4.5MCG DAILY
     Route: 055
     Dates: start: 20060101, end: 20060101

REACTIONS (1)
  - DYSPNOEA [None]
